FAERS Safety Report 17356596 (Version 2)
Quarter: 2020Q1

REPORT INFORMATION
  Report Type: Spontaneous
  Country: US (occurrence: US)
  Receive Date: 20200131
  Receipt Date: 20200316
  Transmission Date: 20200409
  Serious: Yes (Other)
  Sender: FDA-Public Use
  Company Number: US-GUERBET-US-20200016

PATIENT

DRUGS (7)
  1. MITOMYCIN. [Concomitant]
     Active Substance: MITOMYCIN
     Indication: TRANSCATHETER ARTERIAL CHEMOEMBOLISATION
     Route: 013
  2. NORMAL SALINE [Concomitant]
     Active Substance: SODIUM CHLORIDE
     Indication: TRANSCATHETER ARTERIAL CHEMOEMBOLISATION
     Route: 013
  3. FENTANYL. [Concomitant]
     Active Substance: FENTANYL
     Indication: SEDATION
     Route: 065
  4. LIPIODOL [Suspect]
     Active Substance: ETHIODIZED OIL
     Indication: TRANSCATHETER ARTERIAL CHEMOEMBOLISATION
     Route: 013
  5. VISIPAQUE [Concomitant]
     Active Substance: IODIXANOL
     Indication: TRANSCATHETER ARTERIAL CHEMOEMBOLISATION
     Route: 013
  6. POLYVINYL ALCOHOL [Concomitant]
     Active Substance: POLYVINYL ALCOHOL
     Indication: TRANSCATHETER ARTERIAL CHEMOEMBOLISATION
     Dosage: ONE VIAL OF POLYVINYL ALCOHOL PARTICLES 300-500 MICROMETERS
     Route: 013
  7. MIDAZOLAM HYDROCHLORIDE. [Concomitant]
     Active Substance: MIDAZOLAM HYDROCHLORIDE
     Indication: SEDATION
     Route: 065

REACTIONS (2)
  - Bradycardia [Unknown]
  - Product use in unapproved indication [Unknown]
